FAERS Safety Report 7409780-4 (Version None)
Quarter: 2011Q2

REPORT INFORMATION
  Report Type: 
  Country: None (occurrence: None)
  Receive Date: 20110412
  Receipt Date: 20110321
  Transmission Date: 20111010
  Serious: Yes (Hospitalization, Other)
  Sender: FDA-Public Use
  Company Number: US-BAYER-2010-002179

PATIENT
  Age: 60 Year
  Sex: Female
  Weight: 91 kg

DRUGS (3)
  1. SYNTHROID [Concomitant]
     Dosage: UNK
     Dates: start: 20050301
  2. CENTRUM [Concomitant]
     Dosage: UNK UNK, QD
  3. YASMIN [Suspect]
     Indication: PRODUCT USED FOR UNKNOWN INDICATION
     Dosage: UNK
     Dates: start: 20010601

REACTIONS (2)
  - STRESS [None]
  - PULMONARY EMBOLISM [None]
